FAERS Safety Report 5871150-8 (Version None)
Quarter: 2008Q3

REPORT INFORMATION
  Report Type: 
  Country: None (occurrence: None)
  Receive Date: 20080902
  Receipt Date: 20080822
  Transmission Date: 20090109
  Serious: Yes (Other)
  Sender: FDA-Public Use
  Company Number: 2007BI018344

PATIENT
  Age: 52 Year
  Sex: Female
  Weight: 70.7611 kg

DRUGS (5)
  1. TYSABRI [Suspect]
     Indication: MULTIPLE SCLEROSIS
     Dosage: IV
     Route: 042
     Dates: start: 20070420
  2. PHENOBARBITAL (CON.) [Concomitant]
  3. PROZAC(CON.) [Concomitant]
  4. PROVIGIL (CON.) [Concomitant]
  5. ADVIL(CON.) [Concomitant]

REACTIONS (2)
  - BREAST CANCER IN SITU [None]
  - METASTASES TO LYMPH NODES [None]
